FAERS Safety Report 9587792 (Version 2)
Quarter: 2013Q4

REPORT INFORMATION
  Report Type: Spontaneous
  Country: US (occurrence: US)
  Receive Date: 20131003
  Receipt Date: 20131016
  Transmission Date: 20140711
  Serious: Yes (Hospitalization, Other)
  Sender: FDA-Public Use
  Company Number: US-GILEAD-2013-0084697

PATIENT
  Sex: Female

DRUGS (4)
  1. LETAIRIS [Suspect]
     Indication: PRODUCT USED FOR UNKNOWN INDICATION
     Dosage: 10 MG, QD
     Dates: start: 20120613
  2. LETAIRIS [Suspect]
     Dosage: 10 MG, QD
     Dates: start: 20120720
  3. REMODULIN [Concomitant]
  4. SILDENAFIL [Concomitant]

REACTIONS (2)
  - Kidney ablation [Unknown]
  - Renal disorder [Unknown]
